FAERS Safety Report 10365398 (Version 2)
Quarter: 2014Q4

REPORT INFORMATION
  Report Type: Spontaneous
  Country: JP (occurrence: JP)
  Receive Date: 20140806
  Receipt Date: 20141106
  Transmission Date: 20150528
  Serious: Yes (Death)
  Sender: FDA-Public Use
  Company Number: PHHY2011JP121648

PATIENT
  Age: 60 Year
  Sex: Male

DRUGS (4)
  1. GLIVEC [Suspect]
     Active Substance: IMATINIB MESYLATE
     Indication: CHRONIC MYELOID LEUKAEMIA
  2. SPRYCEL [Suspect]
     Active Substance: DASATINIB
     Indication: ACUTE LYMPHOCYTIC LEUKAEMIA
     Dosage: UNK
     Route: 065
  3. GLIVEC [Suspect]
     Active Substance: IMATINIB MESYLATE
     Indication: ACUTE LYMPHOCYTIC LEUKAEMIA
     Dosage: 600 MG, DAILY
     Route: 048
     Dates: start: 20110301
  4. SPRYCEL [Suspect]
     Active Substance: DASATINIB
     Dosage: 100 MG, UNK
     Route: 065

REACTIONS (4)
  - Drug resistance [Not Recovered/Not Resolved]
  - Malignant neoplasm progression [Fatal]
  - Rash [Recovering/Resolving]
  - Acute lymphocytic leukaemia [Fatal]
